FAERS Safety Report 7819009-0 (Version None)
Quarter: 2011Q4

REPORT INFORMATION
  Report Type: 
  Country: None (occurrence: None)
  Receive Date: 20111018
  Receipt Date: 20111013
  Transmission Date: 20120403
  Serious: Yes (Death, Hospitalization, Other)
  Sender: FDA-Public Use
  Company Number: JP-JNJFOC-20090908252

PATIENT
  Sex: Female
  Weight: 52 kg

DRUGS (26)
  1. DOXORUBICIN HCL [Suspect]
     Route: 042
     Dates: start: 20090626, end: 20090626
  2. DOXORUBICIN HCL [Suspect]
     Route: 042
     Dates: start: 20090902, end: 20090902
  3. PRIMPERAN TAB [Concomitant]
     Route: 042
     Dates: start: 20090907, end: 20090916
  4. DOXORUBICIN HCL [Suspect]
     Route: 042
     Dates: start: 20090805, end: 20090805
  5. GASMOTIN [Concomitant]
     Indication: GASTROINTESTINAL MOTILITY DISORDER
     Route: 048
     Dates: start: 20090724
  6. DOXORUBICIN HCL [Suspect]
     Indication: OVARIAN CANCER RECURRENT
     Route: 042
     Dates: start: 20090428, end: 20090428
  7. DOXORUBICIN HCL [Suspect]
     Route: 042
     Dates: start: 20090527, end: 20090527
  8. LANSOPRAZOLE [Concomitant]
     Indication: GASTROOESOPHAGEAL REFLUX DISEASE
     Route: 048
     Dates: start: 20080416
  9. OXALIPLATIN [Suspect]
     Indication: OVARIAN CANCER RECURRENT
     Route: 041
     Dates: start: 20081001
  10. GEMCITABINE HYDROCHLORIDE [Suspect]
     Indication: OVARIAN CANCER RECURRENT
     Route: 041
     Dates: start: 20081029
  11. TPN [Concomitant]
     Route: 042
     Dates: start: 20091006, end: 20091014
  12. MOTILIUM [Concomitant]
     Indication: GASTROINTESTINAL MOTILITY DISORDER
     Route: 048
     Dates: start: 20090724
  13. DOXORUBICIN HCL [Suspect]
     Route: 042
     Dates: start: 20091013, end: 20091013
  14. MOTILIUM [Concomitant]
     Indication: DECREASED APPETITE
     Route: 048
     Dates: start: 20090724
  15. DAI-KENCHU-TO [Concomitant]
     Indication: GASTROINTESTINAL MOTILITY DISORDER
     Dosage: 3 DF
     Route: 048
     Dates: start: 20090724
  16. PYDOXAL [Concomitant]
     Indication: PROPHYLAXIS
     Route: 048
     Dates: start: 20090426
  17. PRIMPERAN TAB [Concomitant]
     Indication: INTESTINAL OBSTRUCTION
     Route: 042
     Dates: start: 20090718, end: 20090727
  18. CONCENTRATED HUMAN RED BLOOD CELLS [Concomitant]
     Route: 042
     Dates: start: 20091030, end: 20091030
  19. CONCENTRATED HUMAN RED BLOOD CELLS [Concomitant]
     Route: 042
     Dates: start: 20091030, end: 20091030
  20. CELECOXIB [Concomitant]
     Indication: CANCER PAIN
     Route: 048
     Dates: start: 20080416
  21. NEUTROGIN [Concomitant]
     Indication: WHITE BLOOD CELL COUNT DECREASED
     Route: 058
     Dates: start: 20090519, end: 20090521
  22. TPN [Concomitant]
     Indication: INTESTINAL OBSTRUCTION
     Route: 042
     Dates: start: 20090718, end: 20090727
  23. TPN [Concomitant]
     Route: 042
     Dates: start: 20090907, end: 20090916
  24. PRIMPERAN TAB [Concomitant]
     Route: 042
     Dates: start: 20091006, end: 20091014
  25. CONCENTRATED HUMAN RED BLOOD CELLS [Concomitant]
     Indication: ERYTHROPENIA
     Route: 042
     Dates: start: 20090618, end: 20090618
  26. CONCENTRATED HUMAN RED BLOOD CELLS [Concomitant]
     Indication: ANAEMIA
     Route: 042
     Dates: start: 20090618, end: 20090618

REACTIONS (6)
  - ANAEMIA [None]
  - ERYTHROPENIA [None]
  - OVARIAN CANCER [None]
  - PLATELET COUNT DECREASED [None]
  - INTESTINAL OBSTRUCTION [None]
  - WHITE BLOOD CELL COUNT DECREASED [None]
